FAERS Safety Report 20182118 (Version 1)
Quarter: 2021Q4

REPORT INFORMATION
  Report Type: Spontaneous
  Country: US (occurrence: US)
  Receive Date: 20211214
  Receipt Date: 20211214
  Transmission Date: 20220303
  Serious: No
  Sender: FDA-Public Use
  Company Number: US-SANOFI-00884577

PATIENT
  Age: 48 Year
  Sex: Female

DRUGS (1)
  1. DUPIXENT [Suspect]
     Active Substance: DUPILUMAB
     Indication: Dermatitis atopic
     Dosage: ONCE
     Route: 058
     Dates: start: 20211203, end: 20211203

REACTIONS (3)
  - COVID-19 [Unknown]
  - Eczema [Unknown]
  - Psoriasis [Unknown]
